FAERS Safety Report 20998525 (Version 1)
Quarter: 2022Q2

REPORT INFORMATION
  Report Type: Report from Study
  Country: DE (occurrence: DE)
  Receive Date: 20220623
  Receipt Date: 20220623
  Transmission Date: 20220721
  Serious: Yes (Death, Other)
  Sender: FDA-Public Use
  Company Number: DE-TAKEDA-2022TUS040802

PATIENT
  Age: 40 Year
  Sex: Female

DRUGS (1)
  1. HUMAN IMMUNOGLOBULIN G\HYALURONIDASE RECOMBINANT HUMAN [Suspect]
     Active Substance: HUMAN IMMUNOGLOBULIN G\HYALURONIDASE RECOMBINANT HUMAN
     Indication: Immunodeficiency common variable
     Dosage: 10 GRAM
     Route: 058
     Dates: start: 20170316

REACTIONS (2)
  - Condition aggravated [Fatal]
  - COVID-19 [Fatal]

NARRATIVE: CASE EVENT DATE: 20220602
